FAERS Safety Report 5914436-0 (Version None)
Quarter: 2008Q4

REPORT INFORMATION
  Report Type: 
  Country: None (occurrence: None)
  Receive Date: 20081009
  Receipt Date: 20080924
  Transmission Date: 20090506
  Serious: Yes (Other)
  Sender: FDA-Public Use
  Company Number: LB-GENENTECH-268814

PATIENT
  Age: 20 Year
  Sex: Male

DRUGS (1)
  1. MABTHERA [Suspect]
     Indication: IDIOPATHIC THROMBOCYTOPENIC PURPURA
     Dosage: 600 MG, 1/WEEK
     Route: 042
     Dates: start: 20080313

REACTIONS (1)
  - LEUKOCYTOCLASTIC VASCULITIS [None]
